FAERS Safety Report 7605703-3 (Version None)
Quarter: 2011Q3

REPORT INFORMATION
  Report Type: 
  Country: None (occurrence: None)
  Receive Date: 20110713
  Receipt Date: 20110708
  Transmission Date: 20111222
  Serious: Yes (Other)
  Sender: FDA-Public Use
  Company Number: IE-PFIZER INC-2011155656

PATIENT
  Age: 62 Year
  Sex: Female

DRUGS (2)
  1. ARTHROTEC [Suspect]
     Indication: ARTHRALGIA
     Dosage: 1 DF,2X/DAY
     Route: 048
     Dates: start: 20110518, end: 20110522
  2. PARAMOL [Concomitant]
     Indication: PAIN
     Dosage: UNK
     Dates: start: 20110518, end: 20110522

REACTIONS (2)
  - EMOTIONAL DISTRESS [None]
  - CHEST PAIN [None]
